FAERS Safety Report 9965069 (Version 1)
Quarter: 2014Q1

REPORT INFORMATION
  Report Type: Spontaneous
  Country: US (occurrence: US)
  Receive Date: 20140305
  Receipt Date: 20140305
  Transmission Date: 20141002
  Serious: No
  Sender: FDA-Public Use
  Company Number: US-ABBVIE-13P-163-1129103-00

PATIENT
  Age: 42 Year
  Sex: Male

DRUGS (6)
  1. HUMIRA [Suspect]
     Indication: CROHN^S DISEASE
     Dosage: INITIAL DOSE
     Dates: start: 201302, end: 201302
  2. HUMIRA [Suspect]
     Dosage: ON DAY 15
     Dates: start: 2013, end: 2013
  3. HUMIRA [Suspect]
     Dates: start: 2013, end: 20130727
  4. 6-MP [Concomitant]
     Indication: CROHN^S DISEASE
  5. ENTOCORT [Concomitant]
     Indication: CROHN^S DISEASE
  6. VITAMIN B12 [Concomitant]
     Indication: PRODUCT USED FOR UNKNOWN INDICATION

REACTIONS (2)
  - Hypoaesthesia [Not Recovered/Not Resolved]
  - Paraesthesia [Not Recovered/Not Resolved]
